FAERS Safety Report 21695221 (Version 1)
Quarter: 2022Q4

REPORT INFORMATION
  Report Type: Spontaneous
  Country: US (occurrence: None)
  Receive Date: 20221207
  Receipt Date: 20221207
  Transmission Date: 20230112
  Serious: No
  Sender: FDA-Public Use
  Company Number: None

PATIENT
  Age: 60 Year
  Sex: Female
  Weight: 45 kg

DRUGS (2)
  1. PAXLOVID [Suspect]
     Active Substance: NIRMATRELVIR\RITONAVIR
     Indication: COVID-19
     Dosage: OTHER STRENGTH : 300MG - 100MG;?OTHER QUANTITY : 1 DOSE PACK;?FREQUENCY : EVERY 12 HOURS;?
     Route: 048
  2. ACETAMINOPHEN [Concomitant]
     Active Substance: ACETAMINOPHEN

REACTIONS (4)
  - Nausea [None]
  - Vomiting [None]
  - Therapy cessation [None]
  - Dehydration [None]

NARRATIVE: CASE EVENT DATE: 20221207
